FAERS Safety Report 15678834 (Version 2)
Quarter: 2018Q4

REPORT INFORMATION
  Report Type: Spontaneous
  Country: CZ (occurrence: CZ)
  Receive Date: 20181202
  Receipt Date: 20181212
  Transmission Date: 20190205
  Serious: Yes (Other)
  Sender: FDA-Public Use
  Company Number: PHHY2018CZ168821

PATIENT

DRUGS (5)
  1. VIEKIRAX [Interacting]
     Active Substance: OMBITASVIR\PARITAPREVIR\RITONAVIR
     Indication: CHRONIC HEPATITIS C
     Dosage: 1 DF (150/100/25 MG), QD
     Route: 065
  2. TACROLIMUS. [Suspect]
     Active Substance: TACROLIMUS
     Indication: ORGAN TRANSPLANT
     Dosage: 0.5 MG, QW
     Route: 065
  3. TACROLIMUS. [Suspect]
     Active Substance: TACROLIMUS
     Indication: IMMUNOSUPPRESSANT DRUG THERAPY
  4. ROSUVASTATIN. [Concomitant]
     Active Substance: ROSUVASTATIN
     Indication: PRODUCT USED FOR UNKNOWN INDICATION
     Dosage: UNK
     Route: 065
  5. EXVIERA [Interacting]
     Active Substance: DASABUVIR
     Indication: CHRONIC HEPATITIS C
     Dosage: 250 MG, BID
     Route: 065

REACTIONS (2)
  - Drug interaction [Unknown]
  - Chronic hepatitis C [Recovering/Resolving]
